FAERS Safety Report 7400793-5 (Version None)
Quarter: 2011Q2

REPORT INFORMATION
  Report Type: 
  Country: None (occurrence: None)
  Receive Date: 20110407
  Receipt Date: 20110331
  Transmission Date: 20111010
  Serious: Yes (Other)
  Sender: FDA-Public Use
  Company Number: B0711467A

PATIENT
  Sex: Female

DRUGS (1)
  1. ZYNTABAC [Suspect]
     Route: 048
     Dates: start: 20110301, end: 20110308

REACTIONS (4)
  - AGGRESSION [None]
  - NERVOUSNESS [None]
  - TACHYCARDIA [None]
  - TREMOR [None]
